FAERS Safety Report 18623309 (Version 3)
Quarter: 2022Q4

REPORT INFORMATION
  Report Type: Report from Study
  Country: FR (occurrence: FR)
  Receive Date: 20201216
  Receipt Date: 20221026
  Transmission Date: 20230112
  Serious: Yes (Hospitalization)
  Sender: FDA-Public Use
  Company Number: FR-PFIZER INC-2020489063

PATIENT
  Age: 83 Year
  Sex: Female
  Weight: 57 kg

DRUGS (7)
  1. IBRANCE [Suspect]
     Active Substance: PALBOCICLIB
     Dosage: 125 MG, 1X/DAY (21 DAYS OUT OF 28 DAYS)
     Dates: start: 20190117, end: 20190326
  2. IBRANCE [Suspect]
     Active Substance: PALBOCICLIB
     Dosage: 100 MG, 1X/DAY (21 DAYS OUT OF 28 DAYS)
     Dates: start: 20190327, end: 20190424
  3. IBRANCE [Suspect]
     Active Substance: PALBOCICLIB
     Dosage: 75 MG, 1X/DAY (21 DAYS OUT OF 28 DAYS)
     Dates: start: 20190425
  4. ALPRAZOLAM [Concomitant]
     Active Substance: ALPRAZOLAM
     Indication: Anxiety
     Dosage: UNK
     Route: 048
     Dates: start: 20200425
  5. FUROSEMIDE [Concomitant]
     Active Substance: FUROSEMIDE
     Indication: Hypertension
     Dosage: UNK
     Route: 048
  6. MIANSERIN [Concomitant]
     Active Substance: MIANSERIN
     Indication: Depression
     Dosage: UNK
     Route: 048
     Dates: start: 20200425
  7. OXYCODONE [Concomitant]
     Active Substance: OXYCODONE
     Indication: Pain
     Dosage: UNK
     Route: 048
     Dates: start: 20190425

REACTIONS (2)
  - Skin toxicity [Recovering/Resolving]
  - Pain [Recovering/Resolving]

NARRATIVE: CASE EVENT DATE: 20190411
